FAERS Safety Report 4513608-X (Version None)
Quarter: 2004Q4

REPORT INFORMATION
  Report Type: 
  Country: None (occurrence: None)
  Receive Date: 20041130
  Receipt Date: 20040812
  Transmission Date: 20050328
  Serious: No
  Sender: FDA-Public Use
  Company Number: US-GLAXOSMITHKLINE-A0521969A

PATIENT
  Age: 47 Year
  Sex: Female

DRUGS (2)
  1. WELLBUTRIN XL [Suspect]
     Indication: DEPRESSION
     Dosage: 150MG PER DAY
     Route: 048
     Dates: start: 20040804
  2. LEXAPRO [Concomitant]
     Indication: ANXIETY
     Dosage: 10MG UNKNOWN
     Route: 065
     Dates: start: 20040225

REACTIONS (3)
  - LOCAL SWELLING [None]
  - PARAESTHESIA [None]
  - PARAESTHESIA ORAL [None]
